FAERS Safety Report 23473457 (Version 1)
Quarter: 2024Q1

REPORT INFORMATION
  Report Type: Spontaneous
  Country: US (occurrence: US)
  Receive Date: 20240203
  Receipt Date: 20240203
  Transmission Date: 20240410
  Serious: Yes (Other)
  Sender: FDA-Public Use
  Company Number: US-TEVA-VS-3151392

PATIENT

DRUGS (2)
  1. UZEDY [Suspect]
     Active Substance: RISPERIDONE
     Indication: Product used for unknown indication
     Route: 048
  2. UZEDY [Suspect]
     Active Substance: RISPERIDONE
     Route: 065

REACTIONS (2)
  - Adverse event [Unknown]
  - Off label use [Unknown]
